FAERS Safety Report 7575948-X (Version None)
Quarter: 2011Q2

REPORT INFORMATION
  Report Type: 
  Country: None (occurrence: None)
  Receive Date: 20110628
  Receipt Date: 20110606
  Transmission Date: 20111010
  Serious: Yes (Life-Threatening, Hospitalization, Other)
  Sender: FDA-Public Use
  Company Number: US-BAYER-2011-017626

PATIENT
  Age: 50 Year
  Sex: Female
  Weight: 96.145 kg

DRUGS (1)
  1. YASMIN [Suspect]
     Indication: ORAL CONTRACEPTION
     Dosage: UNK
     Dates: start: 20041201

REACTIONS (8)
  - INJURY [None]
  - FATIGUE [None]
  - CHOLECYSTITIS CHRONIC [None]
  - EMOTIONAL DISTRESS [None]
  - PAIN [None]
  - PANCREATITIS [None]
  - GALLBLADDER DISORDER [None]
  - ANXIETY [None]
